FAERS Safety Report 6199811-4 (Version None)
Quarter: 2009Q2

REPORT INFORMATION
  Report Type: 
  Country: None (occurrence: None)
  Receive Date: 20090522
  Receipt Date: 20090517
  Transmission Date: 20091009
  Serious: Yes (Life-Threatening, Hospitalization)
  Sender: FDA-Public Use
  Company Number: JP-PFIZER INC-2009215117

PATIENT
  Age: 65 Year

DRUGS (5)
  1. *FLUOROURACIL [Suspect]
     Indication: COLORECTAL CANCER
     Dosage: 643 MG, EVERY 2 WEEKS
     Route: 040
     Dates: start: 20081216
  2. *FLUOROURACIL [Suspect]
     Dosage: 3861 MG, EVERY 2 WEEKS
     Route: 041
     Dates: start: 20081216
  3. *FOLINIC ACID [Suspect]
     Indication: COLORECTAL CANCER
     Dosage: 321 MG, EVERY 2 WEEKS
     Route: 042
     Dates: start: 20081216
  4. SUNITINIB MALATE [Suspect]
     Indication: COLORECTAL CANCER
     Dosage: 12.5 MG, 1X/DAY
     Route: 048
     Dates: start: 20081216
  5. IRINOTECAN HCL [Suspect]
     Indication: COLORECTAL CANCER
     Dosage: 289 MG, EVERY 2 WEEKS
     Route: 042
     Dates: start: 20081216

REACTIONS (3)
  - NEUTROPHIL COUNT DECREASED [None]
  - PNEUMONIA [None]
  - SEPTIC SHOCK [None]
